FAERS Safety Report 25017047 (Version 2)
Quarter: 2025Q3

REPORT INFORMATION
  Report Type: Spontaneous
  Country: EU (occurrence: EU)
  Receive Date: 20250227
  Receipt Date: 20250916
  Transmission Date: 20251020
  Serious: No
  Sender: BECTON DICKINSON
  Company Number: EU-BECTON DICKINSON-IT-BD-25-000077

PATIENT

DRUGS (1)
  1. CHLORAPREP WITH TINT [Suspect]
     Active Substance: CHLORHEXIDINE GLUCONATE\ISOPROPYL ALCOHOL
     Indication: Product used for unknown indication
     Route: 065

REACTIONS (1)
  - Product contamination [Unknown]
